FAERS Safety Report 24870075 (Version 1)
Quarter: 2025Q1

REPORT INFORMATION
  Report Type: Spontaneous
  Country: US (occurrence: US)
  Receive Date: 20250121
  Receipt Date: 20250121
  Transmission Date: 20250408
  Serious: Yes (Hospitalization, Other)
  Sender: IOVANCE BIOTHERAPEUTICS
  Company Number: US-IOVANCE BIOTHERAPEUTICS, INC-2025IOV000005

PATIENT

DRUGS (4)
  1. AMTAGVI [Suspect]
     Active Substance: LIFILEUCEL
     Indication: Lung carcinoma cell type unspecified stage IV
     Route: 042
     Dates: start: 20241220, end: 20241220
  2. ALDESLEUKIN [Suspect]
     Active Substance: ALDESLEUKIN
     Indication: Interleukin therapy
     Route: 042
     Dates: start: 202412, end: 202412
  3. CYCLOPHOSPHAMIDE [Suspect]
     Active Substance: CYCLOPHOSPHAMIDE
     Indication: Lymphodepletion
     Route: 042
     Dates: start: 20241213, end: 20241214
  4. FLUDARABINE [Suspect]
     Active Substance: FLUDARABINE PHOSPHATE
     Indication: Lymphodepletion
     Route: 042
     Dates: start: 20241215, end: 20241219

REACTIONS (5)
  - Renal impairment [Recovered/Resolved]
  - Confusional state [Recovered/Resolved]
  - Haematoma [Unknown]
  - Clostridium difficile infection [Unknown]
  - Guillain-Barre syndrome [Unknown]

NARRATIVE: CASE EVENT DATE: 20241201
